FAERS Safety Report 8973333 (Version 1)
Quarter: 2012Q4

REPORT INFORMATION
  Report Type: 
  Country: US (occurrence: US)
  Receive Date: 20121218
  Receipt Date: 20121218
  Transmission Date: 20130627
  Serious: No
  Sender: FDA-Public Use
  Company Number: US-BRISTOL-MYERS SQUIBB COMPANY-16449712

PATIENT
  Age: 41 Year
  Sex: Female

DRUGS (6)
  1. ABILIFY TABS 5 MG [Suspect]
     Dosage: 5 mg the week before Feburary 29th
  2. LITHIUM [Concomitant]
  3. PROZAC [Concomitant]
  4. BUSPAR [Concomitant]
  5. XANAX [Concomitant]
  6. AMBIEN [Concomitant]

REACTIONS (1)
  - Oedema peripheral [Unknown]
